FAERS Safety Report 23634284 (Version 3)
Quarter: 2024Q1

REPORT INFORMATION
  Report Type: Report from Study
  Country: CN (occurrence: FR)
  Receive Date: 20240314
  Receipt Date: 20240329
  Transmission Date: 20240409
  Serious: Yes (Other)
  Sender: FDA-Public Use
  Company Number: CN-GILEAD-2024-0665677

PATIENT
  Age: 64 Year
  Sex: Female

DRUGS (1)
  1. SACITUZUMAB GOVITECAN-HZIY [Suspect]
     Active Substance: SACITUZUMAB GOVITECAN-HZIY
     Indication: Triple negative breast cancer
     Dosage: 7.5 MG/KG, C1D1 AND C1D8
     Route: 042

REACTIONS (2)
  - Drug-induced liver injury [Unknown]
  - Off label use [Recovered/Resolved]
